FAERS Safety Report 9062667 (Version 1)
Quarter: 2013Q1

REPORT INFORMATION
  Report Type: Report from Study
  Country: US (occurrence: US)
  Receive Date: 20130129
  Receipt Date: 20130129
  Transmission Date: 20140127
  Serious: No
  Sender: FDA-Public Use
  Company Number: US-ABBOTT-12P-163-0948989-00

PATIENT
  Age: 35 Year
  Sex: Male

DRUGS (1)
  1. HUMIRA 40 MG/ 0.8 ML PRE-FILLED SYRINGE [Suspect]
     Indication: PSORIASIS
     Dates: start: 20120307

REACTIONS (5)
  - Sinusitis [Unknown]
  - Sputum discoloured [Unknown]
  - Facial bones fracture [Unknown]
  - Headache [Unknown]
  - Sleep disorder [Unknown]
